FAERS Safety Report 7594848-2 (Version None)
Quarter: 2011Q3

REPORT INFORMATION
  Report Type: 
  Country: None (occurrence: None)
  Receive Date: 20110707
  Receipt Date: 20110622
  Transmission Date: 20111222
  Serious: Yes (Life-Threatening)
  Sender: FDA-Public Use
  Company Number: PL-ASTRAZENECA-2011SE37587

PATIENT
  Sex: Female

DRUGS (2)
  1. VASOPRESSOR [Concomitant]
  2. PROPOFOL [Suspect]
     Dosage: 25-30 ML/HOUR
     Route: 042

REACTIONS (3)
  - PROPOFOL INFUSION SYNDROME [None]
  - CARDIAC FAILURE ACUTE [None]
  - RENAL FAILURE ACUTE [None]
